FAERS Safety Report 17062579 (Version 1)
Quarter: 2019Q4

REPORT INFORMATION
  Report Type: Spontaneous
  Country: GB (occurrence: GB)
  Receive Date: 20191122
  Receipt Date: 20191122
  Transmission Date: 20200122
  Serious: Yes (Hospitalization, Other)
  Sender: FDA-Public Use
  Company Number: GB-TEVA-2019-GB-1139285

PATIENT
  Age: 86 Year
  Sex: Male
  Weight: 96.4 kg

DRUGS (7)
  1. AMLODIPINE [Concomitant]
     Active Substance: AMLODIPINE BESYLATE
  2. ACETYLSALICYLIC ACID [Concomitant]
     Active Substance: ASPIRIN
  3. ATORVASTATIN CALCIUM. [Concomitant]
     Active Substance: ATORVASTATIN CALCIUM
  4. LEVOTHYROXINE SODIUM. [Concomitant]
     Active Substance: LEVOTHYROXINE SODIUM
  5. ALENDRONATE ACID (ALENDRONATE ACID) [Suspect]
     Active Substance: ALENDRONIC ACID
     Indication: PROPHYLAXIS
     Dosage: 70 MG
     Route: 048
     Dates: start: 20180805, end: 20180806
  6. DALTEPARIN [Concomitant]
     Active Substance: DALTEPARIN
     Dosage: PROPHYLACTIC DOSE
  7. RAMIPRIL. [Concomitant]
     Active Substance: RAMIPRIL

REACTIONS (2)
  - Haemodynamic instability [Unknown]
  - Duodenal ulcer haemorrhage [Recovered/Resolved]

NARRATIVE: CASE EVENT DATE: 20180806
